FAERS Safety Report 8487617-2 (Version None)
Quarter: 2012Q3

REPORT INFORMATION
  Report Type: 
  Country: None (occurrence: None)
  Receive Date: 20120705
  Receipt Date: 20120627
  Transmission Date: 20120928
  Serious: Yes (Hospitalization)
  Sender: FDA-Public Use
  Company Number: US-BAYER-2012-047555

PATIENT
  Age: 35 Year
  Sex: Female
  Weight: 60 kg

DRUGS (5)
  1. YASMIN [Suspect]
     Indication: ACNE
     Dosage: UNK
     Dates: start: 20070101, end: 20111201
  2. YASMIN [Suspect]
  3. ACYCLOVIR [Concomitant]
     Dosage: 400 MG, UNK
     Dates: start: 20111113
  4. CYCLOBENZAPRINE HCL [Concomitant]
     Dosage: 10 M
     Route: 048
     Dates: start: 20111114
  5. YASMIN [Suspect]
     Indication: PREMENSTRUAL SYNDROME

REACTIONS (7)
  - MENTAL DISORDER [None]
  - INJURY [None]
  - FEAR [None]
  - DEEP VEIN THROMBOSIS [None]
  - PAIN [None]
  - ANXIETY [None]
  - ANHEDONIA [None]
